FAERS Safety Report 13485104 (Version 1)
Quarter: 2017Q2

REPORT INFORMATION
  Report Type: Spontaneous
  Country: US (occurrence: US)
  Receive Date: 20170425
  Receipt Date: 20170425
  Transmission Date: 20170830
  Serious: No
  Sender: FDA-Public Use
  Company Number: US-JNJFOC-20170415420

PATIENT
  Sex: Female

DRUGS (1)
  1. TYLENOL EXTRA STRENGTH [Suspect]
     Active Substance: ACETAMINOPHEN
     Indication: PRODUCT USED FOR UNKNOWN INDICATION
     Dosage: 1 GELCAP, AS NEEDED (PRN), TRIED TO TAKETHE PRODUCT 4 TIMES
     Route: 048

REACTIONS (3)
  - Incorrect dose administered [Unknown]
  - Choking sensation [Unknown]
  - Product use complaint [Unknown]
